FAERS Safety Report 5590601-X (Version None)
Quarter: 2008Q1

REPORT INFORMATION
  Report Type: 
  Country: None (occurrence: None)
  Receive Date: 20080109
  Receipt Date: 20080101
  Transmission Date: 20080703
  Serious: Yes (Other)
  Sender: FDA-Public Use
  Company Number: 163-21880-08010143

PATIENT

DRUGS (2)
  1. REVLIMID [Suspect]
     Indication: MULTIPLE MYELOMA
     Dosage: 15 MG, DAYS 1-21, ORAL
     Route: 048
     Dates: start: 20070824
  2. CCI 779 (TEMSIROLIMUS) [Suspect]
     Indication: MULTIPLE MYELOMA
     Dosage: 15 MG, OVER 30 MIN ON DAYS 1, 8, 15 AND 21, INTRAVENOUS
     Route: 042
     Dates: start: 20070801

REACTIONS (14)
  - ALANINE AMINOTRANSFERASE ABNORMAL [None]
  - BLOOD ALKALINE PHOSPHATASE ABNORMAL [None]
  - CONSTIPATION [None]
  - FATIGUE [None]
  - HAEMOGLOBIN ABNORMAL [None]
  - HYPERCHOLESTEROLAEMIA [None]
  - HYPERTRIGLYCERIDAEMIA [None]
  - LYMPHOPENIA [None]
  - NAUSEA [None]
  - NEUTROPHIL COUNT ABNORMAL [None]
  - PRURITUS [None]
  - RASH [None]
  - RHINITIS ALLERGIC [None]
  - SKIN EXFOLIATION [None]
